FAERS Safety Report 10575476 (Version 1)
Quarter: 2014Q4

REPORT INFORMATION
  Report Type: Spontaneous
  Country: DE (occurrence: DE)
  Receive Date: 20141111
  Receipt Date: 20141111
  Transmission Date: 20150529
  Serious: Yes (Congenital Anomaly, Other)
  Sender: FDA-Public Use
  Company Number: DE-AUROBINDO-AUR-APL-2014-11679

PATIENT
  Age: 1 Day
  Sex: Female
  Weight: 2.45 kg

DRUGS (6)
  1. NAUSEMA [Concomitant]
     Indication: VOMITING IN PREGNANCY
     Dosage: 30 MG, ONCE A DAY
     Route: 064
  2. LAMOTRIGINE. [Suspect]
     Active Substance: LAMOTRIGINE
     Indication: EPILEPSY
     Dosage: 100 MG, ONCE A DAY
     Route: 064
     Dates: start: 20130210
  3. THYRONAJOD [Concomitant]
     Active Substance: LEVOTHYROXINE SODIUM\POTASSIUM IODIDE
     Indication: HYPOTHYROIDISM
     Dosage: 50 ?G, ONCE A DAY
     Route: 064
     Dates: start: 20130210, end: 20131008
  4. HAEMATE [Concomitant]
     Active Substance: ANTIHEMOPHILIC FACTOR HUMAN
     Indication: VON WILLEBRAND^S DISEASE
     Dosage: 6250 IU, ONCE A DAY
     Route: 064
     Dates: start: 20130325, end: 20130403
  5. LAMOTRIGINE. [Suspect]
     Active Substance: LAMOTRIGINE
     Dosage: 150 MG, ONCE A DAY
     Route: 048
     Dates: end: 20131008
  6. FOLSAN [Concomitant]
     Active Substance: FOLIC ACID
     Indication: PROPHYLAXIS OF NEURAL TUBE DEFECT
     Dosage: 5 MG, ONCE A DAY
     Route: 064
     Dates: start: 20130210, end: 20131008

REACTIONS (3)
  - Foetal exposure during pregnancy [Unknown]
  - Neonatal behavioural syndrome [Unknown]
  - Premature baby [Unknown]
